FAERS Safety Report 4668546-9 (Version None)
Quarter: 2005Q2

REPORT INFORMATION
  Report Type: 
  Country: None (occurrence: None)
  Receive Date: 20050519
  Receipt Date: 20050407
  Transmission Date: 20051028
  Serious: Yes (Other)
  Sender: FDA-Public Use
  Company Number: 2005058953

PATIENT
  Sex: Female

DRUGS (9)
  1. BEXTRA [Suspect]
     Indication: ARTHRITIS
     Dosage: 40 MG (20 MG, 2 IN 1 D), ORAL
     Route: 048
  2. ETANERCEPT (ETANERCEPT) [Suspect]
     Indication: ARTHRITIS
  3. BUPROPION (BUPROPION) [Concomitant]
  4. ALL OTHER THERAPEUTIC PRODUCTS (ALL OTHER THERAPEUTIC PRODUCTS) [Concomitant]
  5. LEVOTHROID [Concomitant]
  6. NEXIUM [Concomitant]
  7. FUROSEMIDE [Concomitant]
  8. MULTIVITAMIN [Concomitant]
  9. VITAMIN E [Concomitant]

REACTIONS (6)
  - BLISTER [None]
  - COUGH [None]
  - DRUG INEFFECTIVE [None]
  - PUSTULAR PSORIASIS [None]
  - RASH GENERALISED [None]
  - SUNBURN [None]
